FAERS Safety Report 22644448 (Version 4)
Quarter: 2023Q4

REPORT INFORMATION
  Report Type: Spontaneous
  Country: US (occurrence: US)
  Receive Date: 20230627
  Receipt Date: 20231114
  Transmission Date: 20240110
  Serious: Yes (Other)
  Sender: FDA-Public Use
  Company Number: US-BRISTOL-MYERS SQUIBB COMPANY-2023-089636

PATIENT
  Age: 61 Year
  Sex: Female

DRUGS (3)
  1. LENALIDOMIDE [Suspect]
     Active Substance: LENALIDOMIDE
     Indication: Plasma cell myeloma in remission
     Dosage: 1 CAPSULE BY MOUTH ONCE DAILY FOR 21 DAYS THEN 7 DAYS OFF EVERY 28 DAYS
     Route: 048
     Dates: start: 20230309
  2. LENALIDOMIDE [Suspect]
     Active Substance: LENALIDOMIDE
     Dosage: TAKE 1 CAPSULE WHOLE BY MOUTH WITH WATER EVERY DAY FOR 21 DAYS THEN 7 DAYS OFF EVERY 28 DAYS
     Route: 048
     Dates: start: 20230525
  3. XANAX [Concomitant]
     Active Substance: ALPRAZOLAM
     Indication: Product used for unknown indication

REACTIONS (13)
  - Arthropod bite [Recovering/Resolving]
  - Depressed mood [Unknown]
  - Diarrhoea [Unknown]
  - Dizziness [Unknown]
  - Haemorrhoids [Unknown]
  - Pain [Unknown]
  - Pruritus [Unknown]
  - Hunger [Unknown]
  - Dizziness exertional [Unknown]
  - Product dose omission issue [Recovered/Resolved]
  - Weight decreased [Recovering/Resolving]
  - Anxiety [Recovering/Resolving]
  - Treatment noncompliance [Unknown]

NARRATIVE: CASE EVENT DATE: 20230909
